FAERS Safety Report 13268500 (Version 3)
Quarter: 2017Q1

REPORT INFORMATION
  Report Type: Report from Study
  Country: US (occurrence: US)
  Receive Date: 20170224
  Receipt Date: 20170330
  Transmission Date: 20170428
  Serious: Yes (Death, Hospitalization, Other)
  Sender: FDA-Public Use
  Company Number: US-JNJFOC-20170222450

PATIENT
  Age: 79 Year
  Sex: Male

DRUGS (7)
  1. IMBRUVICA [Suspect]
     Active Substance: IBRUTINIB
     Indication: DIFFUSE LARGE B-CELL LYMPHOMA
     Route: 048
     Dates: start: 20161125
  2. LOSARTAN. [Concomitant]
     Active Substance: LOSARTAN
  3. WARFARIN [Concomitant]
     Active Substance: WARFARIN
  4. PREDNISONE. [Concomitant]
     Active Substance: PREDNISONE
  5. METOPROLOL. [Concomitant]
     Active Substance: METOPROLOL
  6. MEGACE [Concomitant]
     Active Substance: MEGESTROL ACETATE
  7. LOMOTIL [Concomitant]
     Active Substance: ATROPINE SULFATE\DIPHENOXYLATE HYDROCHLORIDE

REACTIONS (12)
  - Fall [Not Recovered/Not Resolved]
  - Atrial fibrillation [Unknown]
  - Hypotension [Unknown]
  - Joint injury [Not Recovered/Not Resolved]
  - Confusional state [Not Recovered/Not Resolved]
  - Performance status decreased [Unknown]
  - Anaemia [Not Recovered/Not Resolved]
  - Off label use [Recovered/Resolved]
  - Product use issue [Recovered/Resolved]
  - Cardiac disorder [Unknown]
  - Death [Fatal]
  - Contusion [Not Recovered/Not Resolved]

NARRATIVE: CASE EVENT DATE: 20170209
